FAERS Safety Report 13380165 (Version 1)
Quarter: 2017Q1

REPORT INFORMATION
  Report Type: Spontaneous
  Country: CA (occurrence: CA)
  Receive Date: 20170328
  Receipt Date: 20170328
  Transmission Date: 20170429
  Serious: Yes (Other)
  Sender: FDA-Public Use
  Company Number: CA-TEVA-752401ACC

PATIENT
  Sex: Male

DRUGS (7)
  1. BUPROPION SR [Suspect]
     Active Substance: BUPROPION HYDROCHLORIDE
     Dosage: 100 MILLIGRAM DAILY;
     Route: 048
  2. AMLODIPINE [Concomitant]
     Active Substance: AMLODIPINE BESYLATE
  3. GLICLAZIDE [Concomitant]
     Active Substance: GLICLAZIDE
  4. ZOPICLONE [Concomitant]
     Active Substance: ZOPICLONE
  5. VALSARTAN. [Concomitant]
     Active Substance: VALSARTAN
  6. ACETAMINOPHEN. [Concomitant]
     Active Substance: ACETAMINOPHEN
  7. METFORMIN [Concomitant]
     Active Substance: METFORMIN HYDROCHLORIDE

REACTIONS (1)
  - Serotonin syndrome [Unknown]
